FAERS Safety Report 16046431 (Version 2)
Quarter: 2019Q1

REPORT INFORMATION
  Report Type: Not Available
  Country: US (occurrence: US)
  Receive Date: 20190307
  Receipt Date: 20190319
  Transmission Date: 20190418
  Serious: Yes (Hospitalization)
  Sender: FDA-Public Use
  Company Number: US-NEUROCRINE BIOSCIENCES INC.-2019NBI00522

PATIENT
  Age: 46 Year
  Sex: Male

DRUGS (16)
  1. BENZOTROPINE [Concomitant]
     Active Substance: BENZTROPINE
  2. MELATONIN [Concomitant]
     Active Substance: MELATONIN
  3. GUAIFENESIN. [Concomitant]
     Active Substance: GUAIFENESIN
  4. LORATADINE. [Concomitant]
     Active Substance: LORATADINE
  5. OMEPRAZOLE. [Concomitant]
     Active Substance: OMEPRAZOLE
     Dosage: 1-2 CAPSULES BY MOUTH DAILY FOR STOMACH
     Route: 048
  6. TAMSULOSIN [Concomitant]
     Active Substance: TAMSULOSIN
     Route: 048
  7. QUETIAPINE. [Concomitant]
     Active Substance: QUETIAPINE
     Dosage: IN THE EVENING
  8. ATORVASTATIN [Concomitant]
     Active Substance: ATORVASTATIN
     Indication: BLOOD CHOLESTEROL INCREASED
     Route: 048
  9. METHOCARBAMOL. [Concomitant]
     Active Substance: METHOCARBAMOL
     Route: 048
  10. OXYCODONE/ACETAMINOPHEN [Concomitant]
     Active Substance: ACETAMINOPHEN\OXYCODONE HYDROCHLORIDE
     Dosage: 5/325 MG
  11. INGREZZA [Suspect]
     Active Substance: VALBENAZINE
     Indication: TARDIVE DYSKINESIA
     Route: 048
     Dates: start: 20180308
  12. DICLOFENAC [Concomitant]
     Active Substance: DICLOFENAC
     Route: 048
  13. FLUTICASONE. [Concomitant]
     Active Substance: FLUTICASONE
     Dosage: ONE SPRAY EACH NOSTRIL DAILY
  14. PAROXETINE. [Concomitant]
     Active Substance: PAROXETINE
     Dosage: TAKE 1.5 TABLETS
     Route: 048
  15. BREXPIPRAZOLE [Concomitant]
     Active Substance: BREXPIPRAZOLE
  16. METFORMIN [Concomitant]
     Active Substance: METFORMIN HYDROCHLORIDE

REACTIONS (1)
  - Ulcerative keratitis [Not Recovered/Not Resolved]

NARRATIVE: CASE EVENT DATE: 201902
